FAERS Safety Report 17877930 (Version 1)
Quarter: 2020Q2

REPORT INFORMATION
  Report Type: Spontaneous
  Country: US (occurrence: US)
  Receive Date: 20200609
  Receipt Date: 20200609
  Transmission Date: 20200714
  Serious: Yes (Death)
  Sender: FDA-Public Use
  Company Number: US-GILEAD-2020-0470607

PATIENT
  Age: 75 Year
  Sex: Female
  Weight: 119.5 kg

DRUGS (3)
  1. CONVALESCENT PLASMA [Concomitant]
     Active Substance: HUMAN PLASMA
     Dosage: UNK
     Dates: start: 20200520, end: 20200520
  2. REMDESIVIR. [Suspect]
     Active Substance: REMDESIVIR
     Dosage: 100 MG, QD
     Route: 042
     Dates: start: 20200520, end: 20200522
  3. REMDESIVIR. [Suspect]
     Active Substance: REMDESIVIR
     Indication: COVID-19
     Dosage: 200 MG, ONCE
     Route: 042
     Dates: start: 20200519, end: 20200519

REACTIONS (2)
  - Fluid overload [Fatal]
  - Hypotension [Fatal]

NARRATIVE: CASE EVENT DATE: 20200523
